FAERS Safety Report 14211058 (Version 1)
Quarter: 2017Q4

REPORT INFORMATION
  Report Type: Spontaneous
  Country: US (occurrence: US)
  Receive Date: 20171121
  Receipt Date: 20171121
  Transmission Date: 20180321
  Serious: Yes (Life-Threatening, Hospitalization, Other)
  Sender: FDA-Public Use
  Company Number: US-SAOL THERAPEUTICS-0701192036

PATIENT
  Sex: Female

DRUGS (4)
  1. BACLOFEN. [Suspect]
     Active Substance: BACLOFEN
     Indication: PAIN
     Route: 037
  2. OTHER UNSPECIFIED INTRATHECAL MEDICATIONS [Suspect]
     Active Substance: UNSPECIFIED INGREDIENT
     Route: 037
  3. BACLOFEN. [Suspect]
     Active Substance: BACLOFEN
     Indication: POST LAMINECTOMY SYNDROME
  4. DILAUDID [Suspect]
     Active Substance: HYDROMORPHONE HYDROCHLORIDE
     Route: 037

REACTIONS (7)
  - Post procedural infection [Recovered/Resolved]
  - Malaise [Recovered/Resolved]
  - Drug ineffective for unapproved indication [Recovered/Resolved]
  - Cerebrospinal fluid leakage [Recovered/Resolved]
  - Meningitis staphylococcal [Recovered/Resolved]
  - Device malfunction [None]
  - Apparent death [None]

NARRATIVE: CASE EVENT DATE: 2013
